FAERS Safety Report 5027913-4 (Version None)
Quarter: 2006Q2

REPORT INFORMATION
  Report Type: 
  Country: None (occurrence: None)
  Receive Date: 20060616
  Receipt Date: 20060327
  Transmission Date: 20061013
  Serious: Yes (Other)
  Sender: FDA-Public Use
  Company Number: HQWYE565829MAR06

PATIENT
  Sex: Male

DRUGS (3)
  1. ENBREL [Suspect]
     Indication: RHEUMATOID ARTHRITIS
     Dosage: 25 MG, UNSPECIFIED FREQUENCY
     Route: 058
     Dates: start: 20040823
  2. METHOTREXATE [Concomitant]
     Route: 065
     Dates: start: 20040823
  3. RISEDRONATE [Concomitant]
     Route: 065
     Dates: start: 20040823

REACTIONS (1)
  - MALIGNANT MELANOMA [None]
